FAERS Safety Report 4444717-1 (Version None)
Quarter: 2004Q3

REPORT INFORMATION
  Report Type: 
  Country: None (occurrence: None)
  Receive Date: 20040903
  Receipt Date: 20040823
  Transmission Date: 20050211
  Serious: Yes (Life-Threatening, Hospitalization, Other)
  Sender: FDA-Public Use
  Company Number: 2004037790

PATIENT
  Age: 75 Year
  Sex: Female

DRUGS (10)
  1. LIPITOR [Suspect]
     Indication: HYPERCHOLESTEROLAEMIA
     Dosage: 20 MG (1 IN 1 D), ORAL
     Route: 048
  2. BEZAFIBRATE (BEZAFIBRATE) [Suspect]
     Indication: HYPERCHOLESTEROLAEMIA
     Dosage: 400 MG (1 IN 1 D), ORAL
     Route: 048
     Dates: end: 20040531
  3. NIFEDIPINE [Suspect]
     Indication: HYPERTENSION
     Dosage: 120 MG (1 IN 1 D), ORAL
     Route: 048
  4. ATENOLOL [Concomitant]
  5. DIGITOXIN [Concomitant]
  6. DISOPYRAMIDE [Concomitant]
  7. ISOSORBIDE DINITRATE [Concomitant]
  8. ACETYLSALICYLIC ACID [Concomitant]
  9. ISOSORBIDE DINITRATE [Concomitant]
  10. TOCOPHEROL CONCENTRATE CAP [Concomitant]

REACTIONS (18)
  - ALANINE AMINOTRANSFERASE INCREASED [None]
  - ARRHYTHMIA [None]
  - ARTHRALGIA [None]
  - ASPARTATE AMINOTRANSFERASE INCREASED [None]
  - BLOOD TRIGLYCERIDES INCREASED [None]
  - BRADYARRHYTHMIA [None]
  - BRADYCARDIA [None]
  - C-REACTIVE PROTEIN INCREASED [None]
  - DECREASED APPETITE [None]
  - DEHYDRATION [None]
  - DIFFICULTY IN WALKING [None]
  - DRUG THERAPEUTIC INCOMPATIBILITY [None]
  - ELECTROCARDIOGRAM QT PROLONGED [None]
  - HEPATIC FUNCTION ABNORMAL [None]
  - IRON DEFICIENCY ANAEMIA [None]
  - NAUSEA [None]
  - PHARYNGOLARYNGEAL PAIN [None]
  - RENAL FAILURE ACUTE [None]
